FAERS Safety Report 4783450-3 (Version None)
Quarter: 2005Q3

REPORT INFORMATION
  Report Type: 
  Country: None (occurrence: None)
  Receive Date: 20050914
  Receipt Date: 20050304
  Transmission Date: 20060218
  Serious: Yes (Hospitalization)
  Sender: FDA-Public Use
  Company Number: 163-20785-04060112

PATIENT
  Age: 45 Year
  Sex: Female

DRUGS (8)
  1. THALOMID [Suspect]
     Indication: MYELODYSPLASTIC SYNDROME
     Dosage: 50 MG, DAILY, ORAL
     Route: 048
     Dates: start: 20040429, end: 20040514
  2. INSULIN [Concomitant]
  3. COUMADIN [Concomitant]
  4. LEVOXYL [Concomitant]
  5. LORTAB [Concomitant]
  6. NEXIUM [Concomitant]
  7. PHENERGAN [Concomitant]
  8. PHOSLO [Concomitant]

REACTIONS (7)
  - ABDOMINAL PAIN [None]
  - BLOOD AMYLASE INCREASED [None]
  - BLOOD CHOLESTEROL INCREASED [None]
  - BLOOD TRIGLYCERIDES INCREASED [None]
  - HYPERLIPIDAEMIA [None]
  - LIPASE INCREASED [None]
  - PANCREATITIS ACUTE [None]
